FAERS Safety Report 7824995-9 (Version None)
Quarter: 2011Q4

REPORT INFORMATION
  Report Type: 
  Country: None (occurrence: None)
  Receive Date: 20111019
  Receipt Date: 20111013
  Transmission Date: 20120403
  Serious: Yes (Hospitalization, Other)
  Sender: FDA-Public Use
  Company Number: US-MERCK-1008USA00765

PATIENT
  Age: 56 Year
  Sex: Female
  Weight: 59 kg

DRUGS (15)
  1. FOSAMAX [Suspect]
     Route: 048
     Dates: start: 19950101, end: 20080704
  2. SYNTHROID [Concomitant]
     Indication: THYROID DISORDER
     Route: 065
     Dates: start: 19870101
  3. FOSAMAX [Suspect]
     Route: 048
     Dates: start: 20030109
  4. FOSAMAX [Suspect]
     Route: 048
     Dates: start: 20001207
  5. FOSAMAX [Suspect]
     Route: 048
  6. FOSAMAX [Suspect]
     Route: 048
     Dates: start: 19950101, end: 20080704
  7. FOSAMAX [Suspect]
     Indication: OSTEOPENIA
     Route: 048
     Dates: start: 20020214
  8. FOSAMAX [Suspect]
     Indication: OSTEOPOROSIS
     Route: 048
     Dates: start: 20020214
  9. FOSAMAX [Suspect]
     Route: 048
     Dates: start: 20001207
  10. ALLEGRA [Concomitant]
     Indication: HYPERSENSITIVITY
     Route: 065
  11. CALCIUM (UNSPECIFIED) [Concomitant]
     Route: 065
     Dates: start: 19950101
  12. CYANOCOBALAMIN [Concomitant]
     Route: 065
     Dates: start: 19950101
  13. FOSAMAX [Suspect]
     Route: 048
  14. PYRIDOXINE [Concomitant]
     Route: 065
     Dates: start: 19950101
  15. CALCIUM (UNSPECIFIED) [Concomitant]
     Route: 065
     Dates: start: 19990101

REACTIONS (65)
  - VISUAL IMPAIRMENT [None]
  - OSTEOARTHRITIS [None]
  - CARPAL TUNNEL SYNDROME [None]
  - BURSITIS [None]
  - SPINAL COLUMN STENOSIS [None]
  - SPINAL DISORDER [None]
  - TIBIA FRACTURE [None]
  - SPINAL OSTEOARTHRITIS [None]
  - COCCYDYNIA [None]
  - SPONDYLOLISTHESIS [None]
  - TRIGGER FINGER [None]
  - SEASONAL ALLERGY [None]
  - MIGRAINE [None]
  - DYSLIPIDAEMIA [None]
  - HYPERTENSION [None]
  - CYSTITIS [None]
  - FALL [None]
  - FAECAL INCONTINENCE [None]
  - CATARACT [None]
  - SYNOVITIS [None]
  - NIGHT SWEATS [None]
  - HIATUS HERNIA [None]
  - HEARING IMPAIRED [None]
  - GAMMA-GLUTAMYLTRANSFERASE INCREASED [None]
  - INTERVERTEBRAL DISC DEGENERATION [None]
  - HYPERCHOLESTEROLAEMIA [None]
  - LIGAMENT SPRAIN [None]
  - SCIATICA [None]
  - SYNOVIAL CYST [None]
  - MACULAR DEGENERATION [None]
  - BACK PAIN [None]
  - HOT FLUSH [None]
  - INTERVERTEBRAL DISC PROTRUSION [None]
  - FIBULA FRACTURE [None]
  - FEMUR FRACTURE [None]
  - TACHYCARDIA [None]
  - DEPRESSION [None]
  - ARTHRALGIA [None]
  - HYPOAESTHESIA [None]
  - TRANSIENT ISCHAEMIC ATTACK [None]
  - LUMBAR RADICULOPATHY [None]
  - CAROTID ARTERY DISEASE [None]
  - MENTAL STATUS CHANGES [None]
  - ANXIETY [None]
  - BRONCHITIS [None]
  - OEDEMA PERIPHERAL [None]
  - VISION BLURRED [None]
  - URINARY INCONTINENCE [None]
  - UPPER RESPIRATORY TRACT INFECTION [None]
  - OSTEOMALACIA [None]
  - HEPATOMEGALY [None]
  - ADVERSE DRUG REACTION [None]
  - BLOOD ALKALINE PHOSPHATASE INCREASED [None]
  - INTERVERTEBRAL DISC DISORDER [None]
  - JOINT EFFUSION [None]
  - INFECTION [None]
  - PAIN IN EXTREMITY [None]
  - AMAUROSIS FUGAX [None]
  - ANAEMIA POSTOPERATIVE [None]
  - ARTHROPATHY [None]
  - CONTUSION [None]
  - PARAESTHESIA [None]
  - PROTEINURIA [None]
  - FRACTURE DELAYED UNION [None]
  - BLOOD GLUCOSE INCREASED [None]
